FAERS Safety Report 5755323-0 (Version None)
Quarter: 2008Q2

REPORT INFORMATION
  Report Type: 
  Country: None (occurrence: None)
  Receive Date: 20080529
  Receipt Date: 20080529
  Transmission Date: 20081010
  Serious: Yes (Other)
  Sender: FDA-Public Use
  Company Number: None

PATIENT
  Age: 46 Year
  Sex: Female
  Weight: 55.3388 kg

DRUGS (4)
  1. CHANTIX [Suspect]
     Indication: SMOKING CESSATION THERAPY
     Dosage: 1 TABLET 12 HOURS PO
     Route: 048
     Dates: start: 20071001, end: 20080415
  2. TRIAM HCT [Concomitant]
  3. EFFEXOR [Concomitant]
  4. ALLEGRA-D [Concomitant]

REACTIONS (7)
  - ANXIETY [None]
  - DEPRESSION [None]
  - GALLBLADDER OPERATION [None]
  - INSOMNIA [None]
  - NAUSEA [None]
  - STOMACH DISCOMFORT [None]
  - SUICIDAL IDEATION [None]
